FAERS Safety Report 6266886-3 (Version None)
Quarter: 2009Q3

REPORT INFORMATION
  Report Type: 
  Country: None (occurrence: None)
  Receive Date: 20090714
  Receipt Date: 20090706
  Transmission Date: 20100115
  Serious: Yes (Other)
  Sender: FDA-Public Use
  Company Number: FR-ALLERGAN-0909553US

PATIENT
  Age: 36 Year
  Sex: Male

DRUGS (2)
  1. BOTOX [Suspect]
     Indication: HYPERTONIC BLADDER
     Dosage: 300 UNITS, SINGLE
     Route: 030
     Dates: start: 20090327, end: 20090327
  2. LOCAL ANESTHESIA [Concomitant]
     Dosage: UNK, SINGLE

REACTIONS (2)
  - ASTHENIA [None]
  - MUSCULAR WEAKNESS [None]
